FAERS Safety Report 12168878 (Version 2)
Quarter: 2017Q2

REPORT INFORMATION
  Report Type: Spontaneous
  Country: ES (occurrence: ES)
  Receive Date: 20160310
  Receipt Date: 20170531
  Transmission Date: 20170830
  Serious: Yes (Other)
  Sender: FDA-Public Use
  Company Number: ES-PFIZER INC-2016139733

PATIENT
  Sex: Female

DRUGS (2)
  1. BENZNIDAZOLE [Suspect]
     Active Substance: BENZNIDAZOLE
     Dosage: UNK
     Route: 023
  2. METRONIDAZOLE. [Suspect]
     Active Substance: METRONIDAZOLE
     Dosage: UNK
     Route: 023

REACTIONS (1)
  - Drug cross-reactivity [Unknown]
